FAERS Safety Report 4488347-4 (Version None)
Quarter: 2004Q4

REPORT INFORMATION
  Report Type: 
  Country: None (occurrence: None)
  Receive Date: 20041026
  Receipt Date: 20041012
  Transmission Date: 20050328
  Serious: Yes (Death, Hospitalization, Other)
  Sender: FDA-Public Use
  Company Number: US-2004-033423

PATIENT
  Age: 78 Year
  Sex: Male
  Weight: 71.7 kg

DRUGS (2)
  1. FLUDARA [Suspect]
     Indication: CHRONIC LYMPHOCYTIC LEUKAEMIA
     Dosage: MONTHLY CYCLES AT STANDARD DOSES
     Dates: start: 20031201, end: 20040401
  2. CYCLOPHOSPHAMIDE [Suspect]
     Indication: CHRONIC LYMPHOCYTIC LEUKAEMIA
     Dosage: MONTHLY CYCLES AT STANDARD DOSES
     Dates: start: 20031201, end: 20040401

REACTIONS (9)
  - AUTOIMMUNE NEUTROPENIA [None]
  - AUTOIMMUNE THROMBOCYTOPENIA [None]
  - GRANULOCYTOPENIA [None]
  - PNEUMONIA [None]
  - SEPSIS [None]
  - SKIN INFECTION [None]
  - SKIN LESION [None]
  - UPPER RESPIRATORY TRACT INFECTION [None]
  - WEIGHT DECREASED [None]
